FAERS Safety Report 5404752-3 (Version None)
Quarter: 2007Q3

REPORT INFORMATION
  Report Type: 
  Country: None (occurrence: None)
  Receive Date: 20070801
  Receipt Date: 20070723
  Transmission Date: 20080115
  Serious: Yes (Hospitalization)
  Sender: FDA-Public Use
  Company Number: L07-JPN-03159-01

PATIENT
  Age: 51 Year
  Sex: Female

DRUGS (1)
  1. THEOPHYLLINE [Suspect]
     Indication: ASTHMA

REACTIONS (4)
  - AUTOIMMUNE THYROIDITIS [None]
  - HYPERCALCAEMIA [None]
  - HYPOCALCIURIA [None]
  - RENAL FAILURE [None]
